FAERS Safety Report 7375137 (Version 3)
Quarter: 2013Q2

REPORT INFORMATION
  Report Type: Spontaneous
  Country: US (occurrence: US)
  Receive Date: 20100503
  Receipt Date: 20130430
  Transmission Date: 20140414
  Serious: No
  Sender: FDA-Public Use
  Company Number: US-ASTRAZENECA-2009SE28828

PATIENT
  Age: 58 Year
  Sex: Male
  Weight: 104.3 kg

DRUGS (1)
  1. NEXIUM [Suspect]
     Indication: GASTROOESOPHAGEAL REFLUX DISEASE
     Route: 048
     Dates: start: 2002

REACTIONS (6)
  - Gastrooesophageal reflux disease [Unknown]
  - Malaise [Unknown]
  - Nausea [Unknown]
  - Dysphagia [Unknown]
  - Odynophagia [Unknown]
  - Intentional drug misuse [Unknown]
